FAERS Safety Report 12681599 (Version 2)
Quarter: 2016Q3

REPORT INFORMATION
  Report Type: Spontaneous
  Country: US (occurrence: US)
  Receive Date: 20160824
  Receipt Date: 20160906
  Transmission Date: 20161109
  Serious: Yes (Other)
  Sender: FDA-Public Use
  Company Number: US-EMERGENT BIOSOLUTIONS-16BA00069SP

PATIENT
  Age: 47 Year
  Sex: Male
  Weight: 117 kg

DRUGS (7)
  1. PHOSPHORUS [Concomitant]
     Active Substance: PHOSPHORUS
     Dosage: 130 MG, BID
     Route: 048
     Dates: start: 20160611, end: 20160614
  2. COLACE [Concomitant]
     Active Substance: DOCUSATE SODIUM
     Dosage: 50 UNK, QD
     Route: 048
     Dates: start: 20160613, end: 20160616
  3. PROTONIX [Concomitant]
     Active Substance: PANTOPRAZOLE SODIUM
     Dosage: 40 MG, QD
     Route: 042
     Dates: start: 20160610, end: 20160616
  4. CHRONULAC [Concomitant]
     Active Substance: LACTULOSE
     Dosage: 10 G, BID
     Route: 048
     Dates: start: 20160613, end: 20160616
  5. MICROZIDE [Concomitant]
     Active Substance: HYDROCHLOROTHIAZIDE
     Dosage: 12.5 MG, QD
     Route: 048
     Dates: start: 20160614, end: 20160615
  6. BAT [Suspect]
     Active Substance: EQUINE BOTULINUM NEUROTOXIN A/B/C/D/E/F/G IMMUNE FAB2
     Indication: BOTULISM
     Dosage: 176 ML, SINGLE
     Dates: start: 20160610, end: 20160610
  7. PORCINE-LONGACT [Concomitant]
     Dosage: 5000 UNIT, TID
     Route: 058
     Dates: start: 20160609, end: 20160616

REACTIONS (1)
  - Pneumonia aspiration [Recovered/Resolved]

NARRATIVE: CASE EVENT DATE: 20160616
